FAERS Safety Report 4820301-2 (Version None)
Quarter: 2005Q4

REPORT INFORMATION
  Report Type: 
  Country: None (occurrence: None)
  Receive Date: 20051104
  Receipt Date: 20051021
  Transmission Date: 20060501
  Serious: Yes (Life-Threatening, Hospitalization)
  Sender: FDA-Public Use
  Company Number: ES-AVENTIS-200514028EU

PATIENT
  Age: 62 Year
  Sex: Male

DRUGS (5)
  1. SEGURIL [Suspect]
     Indication: HEPATIC CIRRHOSIS
     Route: 048
     Dates: end: 20050405
  2. SEGURIL [Suspect]
     Route: 048
     Dates: start: 20050406, end: 20050413
  3. SEGURIL [Suspect]
     Route: 048
  4. ALDACTONE [Suspect]
     Indication: HEPATIC CIRRHOSIS
     Route: 048
     Dates: start: 20050406, end: 20050413
  5. UNKNOWN DRUG [Concomitant]

REACTIONS (1)
  - HEPATIC ENCEPHALOPATHY [None]
